FAERS Safety Report 16370303 (Version 1)
Quarter: 2019Q2

REPORT INFORMATION
  Report Type: Spontaneous
  Country: US (occurrence: US)
  Receive Date: 20190530
  Receipt Date: 20190530
  Transmission Date: 20190711
  Serious: No
  Sender: FDA-Public Use
  Company Number: US-ELI_LILLY_AND_COMPANY-US201905012752

PATIENT
  Sex: Male

DRUGS (5)
  1. NOVOLOG [Concomitant]
     Active Substance: INSULIN ASPART
     Indication: TYPE 2 DIABETES MELLITUS
     Dosage: 8 U, EACH MORNING
  2. BASAGLAR [Suspect]
     Active Substance: INSULIN GLARGINE
     Indication: TYPE 2 DIABETES MELLITUS
     Dosage: 32 U, EACH MORNING
     Route: 058
     Dates: start: 2018
  3. NOVOLOG [Concomitant]
     Active Substance: INSULIN ASPART
     Dosage: 4 U, DAILY (LUNCH)
  4. BASAGLAR [Suspect]
     Active Substance: INSULIN GLARGINE
     Dosage: 12 U, EACH EVENING (NIGHT)
     Route: 058
     Dates: start: 2018
  5. NOVOLOG [Concomitant]
     Active Substance: INSULIN ASPART
     Dosage: 6 U, EACH EVENING (DINNER)

REACTIONS (3)
  - Blood glucose increased [Not Recovered/Not Resolved]
  - Inappropriate schedule of product administration [Unknown]
  - Malaise [Not Recovered/Not Resolved]
